FAERS Safety Report 6626308-7 (Version None)
Quarter: 2010Q1

REPORT INFORMATION
  Report Type: 
  Country: None (occurrence: None)
  Receive Date: 20100310
  Receipt Date: 20090507
  Transmission Date: 20100710
  Serious: No
  Sender: FDA-Public Use
  Company Number: US-ABBOTT-09P-163-0572461-00

PATIENT
  Sex: Female
  Weight: 54.934 kg

DRUGS (6)
  1. LUPRON DEPOT [Suspect]
     Indication: ENDOMETRIOSIS
     Dosage: ONE DOSE
     Route: 050
     Dates: start: 20090507, end: 20090507
  2. REMICADE [Concomitant]
     Indication: RHEUMATOID ARTHRITIS
     Route: 042
  3. METHOTREXATE [Concomitant]
     Indication: RHEUMATOID ARTHRITIS
     Route: 048
  4. FOLIC ACID [Concomitant]
     Indication: MEDICAL DIET
     Route: 048
  5. VICODIN [Concomitant]
     Indication: PAIN
     Route: 048
  6. VICODIN [Concomitant]
     Indication: SWELLING

REACTIONS (1)
  - URTICARIA [None]
